FAERS Safety Report 5442336-1 (Version None)
Quarter: 2007Q3

REPORT INFORMATION
  Report Type: 
  Country: None (occurrence: None)
  Receive Date: 20070904
  Receipt Date: 20070801
  Transmission Date: 20080115
  Serious: Yes (Other)
  Sender: FDA-Public Use
  Company Number: US-PFIZER INC-2007046277

PATIENT
  Sex: Female
  Weight: 100.2 kg

DRUGS (2)
  1. BEXTRA [Suspect]
     Indication: ARTHRALGIA
  2. BEXTRA [Suspect]
     Indication: INFLAMMATION

REACTIONS (1)
  - STEVENS-JOHNSON SYNDROME [None]
